FAERS Safety Report 10121003 (Version 1)
Quarter: 2014Q2

REPORT INFORMATION
  Report Type: Spontaneous
  Country: RU (occurrence: RU)
  Receive Date: 20140425
  Receipt Date: 20140425
  Transmission Date: 20141212
  Serious: Yes (Other)
  Sender: FDA-Public Use
  Company Number: RU-VIIV HEALTHCARE LIMITED-B0988508A

PATIENT
  Sex: Female

DRUGS (9)
  1. LAMIVUDINE-HIV [Suspect]
     Indication: HIV INFECTION
     Route: 065
  2. KALETRA [Suspect]
     Indication: HIV INFECTION
     Route: 065
  3. VIDEX [Suspect]
     Indication: HIV INFECTION
     Route: 065
  4. AMIKACIN [Concomitant]
     Indication: TUBERCULOSIS
     Route: 030
     Dates: start: 2014
  5. RIFABUTIN [Concomitant]
     Indication: TUBERCULOSIS
     Route: 048
     Dates: start: 2014
  6. PYRIDOXINE [Concomitant]
     Indication: TUBERCULOSIS
     Dates: start: 2014
  7. ISONIAZID [Concomitant]
     Indication: TUBERCULOSIS
     Route: 048
     Dates: start: 2014
  8. ETHAMBUTOL [Concomitant]
     Indication: TUBERCULOSIS
     Route: 048
     Dates: start: 2014
  9. ANTIBIOTICS [Concomitant]
     Indication: IRIDOCYCLITIS
     Dates: start: 201403

REACTIONS (6)
  - Tuberculosis [Not Recovered/Not Resolved]
  - Iridocyclitis [Not Recovered/Not Resolved]
  - Chlamydial infection [Not Recovered/Not Resolved]
  - Drug ineffective [Not Recovered/Not Resolved]
  - Ocular hyperaemia [Unknown]
  - Eye pain [Unknown]
